FAERS Safety Report 4465134-4 (Version None)
Quarter: 2004Q3

REPORT INFORMATION
  Report Type: 
  Country: None (occurrence: None)
  Receive Date: 20040928
  Receipt Date: 20040928
  Transmission Date: 20050211
  Serious: Yes (Hospitalization)
  Sender: FDA-Public Use
  Company Number: None

PATIENT
  Sex: Male

DRUGS (11)
  1. NEURONTIN [Suspect]
     Indication: CONVULSION
     Dosage: SEE IMAGE
     Route: 048
  2. . [Concomitant]
  3. ASPIRIN [Concomitant]
  4. CLONAZEPAM [Concomitant]
  5. CLOPIDOGREL [Concomitant]
  6. DONEPAZIL [Concomitant]
  7. FERROUS SULFATE TAB [Concomitant]
  8. IPRATROPIUM BROMIDE [Concomitant]
  9. LISINOPRIL [Concomitant]
  10. METOPROLOL [Concomitant]
  11. OMEPRAZOLE [Concomitant]

REACTIONS (2)
  - DEPRESSION [None]
  - SOMNOLENCE [None]
